FAERS Safety Report 19882434 (Version 2)
Quarter: 2022Q3

REPORT INFORMATION
  Report Type: Spontaneous
  Country: US (occurrence: US)
  Receive Date: 20210925
  Receipt Date: 20220815
  Transmission Date: 20221027
  Serious: No
  Sender: FDA-Public Use
  Company Number: US-AMGEN-USASP2021146265

PATIENT
  Age: 75 Year
  Sex: Female

DRUGS (3)
  1. EVENITY [Suspect]
     Active Substance: ROMOSOZUMAB-AQQG
     Indication: Osteoporosis postmenopausal
     Dosage: UNK
     Route: 065
     Dates: start: 20210914
  2. CALCIUM [Concomitant]
     Active Substance: CALCIUM
     Dosage: UNK (THE PATIENT TOOK 2400 CALCIUM THEN THE PATIENT HAD CALCIUM REDUCED TO 600 THEN STOPPED)
     Route: 065
  3. VITAMIN D [Concomitant]
     Active Substance: VITAMIN D NOS
     Dosage: UNK (5000 AND THEN STOPPED)

REACTIONS (5)
  - Bone pain [Unknown]
  - Blood calcium increased [Unknown]
  - Pain [Unknown]
  - Musculoskeletal disorder [Unknown]
  - Wrong technique in product usage process [Unknown]

NARRATIVE: CASE EVENT DATE: 20210901
